FAERS Safety Report 9444013 (Version 2)
Quarter: 2013Q3

REPORT INFORMATION
  Report Type: Spontaneous
  Country: US (occurrence: US)
  Receive Date: 20130807
  Receipt Date: 20130829
  Transmission Date: 20140515
  Serious: No
  Sender: FDA-Public Use
  Company Number: US-009507513-1307USA012973

PATIENT
  Age: 72 Year
  Sex: Female

DRUGS (4)
  1. DULERA [Suspect]
     Dosage: 2 PUFFS, QD
     Route: 055
     Dates: end: 2013
  2. DULERA [Suspect]
     Dosage: 2 PUFFS, QD
     Route: 055
     Dates: start: 20130717, end: 20130721
  3. DULERA [Suspect]
     Dosage: 2 PUFFS, QD
     Route: 055
     Dates: start: 201307
  4. TUDORZA [Concomitant]

REACTIONS (3)
  - Adverse event [Recovered/Resolved]
  - Product quality issue [Unknown]
  - Drug dose omission [Unknown]
